FAERS Safety Report 4889218-1 (Version None)
Quarter: 2006Q1

REPORT INFORMATION
  Report Type: 
  Country: None (occurrence: None)
  Receive Date: 20060120
  Receipt Date: 20060120
  Transmission Date: 20060701
  Serious: Yes (Hospitalization)
  Sender: FDA-Public Use
  Company Number: None

PATIENT
  Sex: Female
  Weight: 63.5036 kg

DRUGS (4)
  1. LEXAPRO [Suspect]
     Indication: ANXIETY
     Dosage: 10 MG   ONCE DAILY  PO
     Route: 048
     Dates: start: 20051210, end: 20060111
  2. APRI -BIRTH CONTROL- [Concomitant]
  3. ALLEGRA [Concomitant]
  4. ATIVAN [Concomitant]

REACTIONS (4)
  - ANXIETY [None]
  - MALAISE [None]
  - NAUSEA [None]
  - VASCULITIS [None]
